FAERS Safety Report 11472058 (Version 5)
Quarter: 2015Q4

REPORT INFORMATION
  Report Type: Spontaneous
  Country: US (occurrence: US)
  Receive Date: 20150908
  Receipt Date: 20151012
  Transmission Date: 20160304
  Serious: Yes (Hospitalization, Disabling)
  Sender: FDA-Public Use
  Company Number: US-NPS_PHARMACEUTICALS-002496

PATIENT
  Age: 51 Year
  Sex: Female
  Weight: 86 kg

DRUGS (3)
  1. TB DRUGS [Concomitant]
     Indication: TUBERCULOSIS
     Dosage: DF
     Dates: end: 20150922
  2. NATPARA (PARATHYROID HORMONE) [Suspect]
     Active Substance: PARATHYROID HORMONE
     Indication: HYPOPARATHYROIDISM
     Dosage: DF, EVERY OTHER DAY
     Route: 058
     Dates: start: 20150905
  3. NATPARA (PARATHYROID HORMONE) [Suspect]
     Active Substance: PARATHYROID HORMONE
     Route: 058
     Dates: start: 20150819, end: 20150825

REACTIONS (24)
  - Renal impairment [Recovered/Resolved]
  - Pollakiuria [Recovered/Resolved]
  - Diarrhoea [Recovered/Resolved]
  - Nephrolithiasis [Recovered/Resolved]
  - Visual impairment [Unknown]
  - Haemoglobin decreased [Unknown]
  - Abdominal pain [Recovered/Resolved]
  - Drug dose omission [Unknown]
  - Fatigue [Unknown]
  - Abdominal distension [Recovered/Resolved]
  - Anaemia [Unknown]
  - Headache [Not Recovered/Not Resolved]
  - Blood iron increased [Unknown]
  - Decreased appetite [Not Recovered/Not Resolved]
  - Vomiting [Not Recovered/Not Resolved]
  - Hypercalcaemia [Unknown]
  - Red blood cell count decreased [Unknown]
  - Vision blurred [Not Recovered/Not Resolved]
  - Nausea [Recovered/Resolved]
  - Blood calcium increased [Recovered/Resolved]
  - Spinal pain [Unknown]
  - Haematocrit decreased [Unknown]
  - Ureteric obstruction [Recovered/Resolved]
  - Confusional state [Not Recovered/Not Resolved]

NARRATIVE: CASE EVENT DATE: 2015
